FAERS Safety Report 7705570-3 (Version None)
Quarter: 2011Q3

REPORT INFORMATION
  Report Type: 
  Country: None (occurrence: None)
  Receive Date: 20110823
  Receipt Date: 20110823
  Transmission Date: 20111222
  Serious: Yes (Hospitalization)
  Sender: FDA-Public Use
  Company Number: None

PATIENT
  Age: 80 Year
  Sex: Male
  Weight: 80.1 kg

DRUGS (3)
  1. SULFAMETHOXAZOLE AND TRIMETHOPRIM [Suspect]
     Indication: BRONCHITIS
     Dosage: 1 TAB BID PO
     Route: 048
     Dates: start: 20110401
  2. SULFAMETHOXAZOLE AND TRIMETHOPRIM [Suspect]
     Indication: PNEUMONIA
     Dosage: 1 TAB BID PO
     Route: 048
     Dates: start: 20110401
  3. WARFARIN SODIUM [Suspect]
     Indication: ATRIAL FIBRILLATION
     Dosage: 3 MG EVERY DAY PO
     Route: 048
     Dates: start: 20100629, end: 20110408

REACTIONS (3)
  - MELAENA [None]
  - GASTRIC HAEMORRHAGE [None]
  - ASTHENIA [None]
